FAERS Safety Report 21577357 (Version 1)
Quarter: 2022Q4

REPORT INFORMATION
  Report Type: Spontaneous
  Country: MX (occurrence: MX)
  Receive Date: 20221110
  Receipt Date: 20221110
  Transmission Date: 20230112
  Serious: Yes (Life-Threatening)
  Sender: FDA-Public Use
  Company Number: MX-BAUSCHBL-2022BNL001639

PATIENT
  Age: 31 Year
  Sex: Male

DRUGS (3)
  1. DEXAMETHASONE [Suspect]
     Active Substance: DEXAMETHASONE
     Indication: Antifungal treatment
     Route: 065
  2. AMPHOTERICIN B [Suspect]
     Active Substance: AMPHOTERICIN B
     Indication: Antifungal treatment
     Route: 042
  3. FLUCONAZOLE [Suspect]
     Active Substance: FLUCONAZOLE
     Indication: Antifungal treatment
     Route: 042

REACTIONS (1)
  - Therapy non-responder [Unknown]
